FAERS Safety Report 14599436 (Version 11)
Quarter: 2021Q2

REPORT INFORMATION
  Report Type: Spontaneous
  Country: JP (occurrence: JP)
  Receive Date: 20180305
  Receipt Date: 20210622
  Transmission Date: 20210716
  Serious: Yes (Life-Threatening, Hospitalization, Disabling, Other)
  Sender: FDA-Public Use
  Company Number: JP-BRISTOL-MYERS SQUIBB COMPANY-BMS-2018-020465

PATIENT
  Age: 70 Year
  Sex: Male
  Weight: 63 kg

DRUGS (14)
  1. OPDIVO [Suspect]
     Active Substance: NIVOLUMAB
     Dosage: 3 MG/KG, UNK
     Route: 041
     Dates: start: 20171219
  2. OPDIVO [Suspect]
     Active Substance: NIVOLUMAB
     Dosage: 3 MG/KG, UNK
     Route: 041
     Dates: start: 20180206
  3. OPDIVO [Suspect]
     Active Substance: NIVOLUMAB
     Dosage: 3 MG/KG, UNK
     Route: 041
     Dates: start: 20171024
  4. OPDIVO [Suspect]
     Active Substance: NIVOLUMAB
     Dosage: 3 MG/KG, UNK
     Route: 041
     Dates: start: 20180123
  5. CLARITHROMYCIN. [Concomitant]
     Active Substance: CLARITHROMYCIN
     Indication: PRODUCT USED FOR UNKNOWN INDICATION
     Dosage: 400 MG, QD
     Route: 048
     Dates: start: 20160803
  6. OPDIVO [Suspect]
     Active Substance: NIVOLUMAB
     Dosage: 3 MG/KG, UNK
     Route: 041
     Dates: start: 20171205
  7. AMLODIPINE [Concomitant]
     Active Substance: AMLODIPINE BESYLATE
     Indication: PRODUCT USED FOR UNKNOWN INDICATION
     Dosage: 5 MG, QD
     Route: 048
  8. OPDIVO [Suspect]
     Active Substance: NIVOLUMAB
     Dosage: 3 MG/KG, UNK
     Route: 041
     Dates: start: 20180109
  9. OPDIVO [Suspect]
     Active Substance: NIVOLUMAB
     Dosage: 3 MG/KG, UNK
     Route: 041
     Dates: start: 20171121
  10. ALLOPURINOL. [Concomitant]
     Active Substance: ALLOPURINOL
     Indication: PRODUCT USED FOR UNKNOWN INDICATION
     Dosage: 100 MG, QD
     Route: 048
  11. OPDIVO [Suspect]
     Active Substance: NIVOLUMAB
     Indication: NON-SMALL CELL LUNG CANCER
     Dosage: 3 MG/KG, UNK
     Route: 041
     Dates: start: 20171010
  12. OPDIVO [Suspect]
     Active Substance: NIVOLUMAB
     Dosage: 3 MG/KG, UNK
     Route: 041
     Dates: start: 20180220
  13. ESANBUTOL [ETHAMBUTOL] [Concomitant]
     Active Substance: ETHAMBUTOL HYDROCHLORIDE
     Indication: PRODUCT USED FOR UNKNOWN INDICATION
     Dosage: 750 MG, QD
     Route: 048
     Dates: start: 20160803
  14. OPDIVO [Suspect]
     Active Substance: NIVOLUMAB
     Dosage: 3 MG/KG, UNK
     Route: 041
     Dates: start: 20171107

REACTIONS (4)
  - Hypophysitis [Recovering/Resolving]
  - Hypopituitarism [Recovering/Resolving]
  - Secondary adrenocortical insufficiency [Recovering/Resolving]
  - Dementia with Lewy bodies [Not Recovered/Not Resolved]

NARRATIVE: CASE EVENT DATE: 20180206
